FAERS Safety Report 8888126 (Version 2)
Quarter: 2012Q4

REPORT INFORMATION
  Report Type: 
  Country: FR (occurrence: FR)
  Receive Date: 20121106
  Receipt Date: 20121201
  Transmission Date: 20130627
  Serious: Yes (Hospitalization)
  Sender: FDA-Public Use
  Company Number: FR-ACCORD-015125

PATIENT
  Age: 60 Year
  Sex: Female

DRUGS (1)
  1. GEMCITABINE [Suspect]
     Indication: ADENOCARCINOMA
     Route: 042
     Dates: start: 20120906, end: 20120906

REACTIONS (7)
  - Thrombocytopenia [Recovered/Resolved]
  - Anaemia [Recovered/Resolved]
  - Hepatocellular injury [Recovered/Resolved]
  - Cholestasis [Recovered/Resolved]
  - Asthenia [Recovered/Resolved]
  - Overdose [Recovered/Resolved]
  - Wrong technique in drug usage process [Unknown]
